FAERS Safety Report 17157175 (Version 1)
Quarter: 2019Q4

REPORT INFORMATION
  Report Type: Spontaneous
  Country: US (occurrence: US)
  Receive Date: 20191216
  Receipt Date: 20191216
  Transmission Date: 20200122
  Serious: No
  Sender: FDA-Public Use
  Company Number: US-BRISTOL-MYERS SQUIBB COMPANY-BMS-2019-118359

PATIENT
  Age: 49 Year
  Sex: Female
  Weight: 61.24 kg

DRUGS (1)
  1. KENALOG-40 [Suspect]
     Active Substance: TRIAMCINOLONE ACETONIDE
     Indication: RASH
     Dosage: FREQUENCY: FIRST DOSE KENALOG-40 INJECTION (1.5CC EQUAL 60 DOSE)
     Route: 051
     Dates: start: 20191108

REACTIONS (2)
  - Fatigue [Unknown]
  - Menorrhagia [Unknown]

NARRATIVE: CASE EVENT DATE: 20191118
